FAERS Safety Report 5273931-0 (Version None)
Quarter: 2007Q1

REPORT INFORMATION
  Report Type: 
  Country: None (occurrence: None)
  Receive Date: 20070323
  Receipt Date: 20070316
  Transmission Date: 20070707
  Serious: Yes (Hospitalization)
  Sender: FDA-Public Use
  Company Number: 2007SE01403

PATIENT
  Age: 37 Year
  Sex: Male

DRUGS (4)
  1. SEROQUEL [Suspect]
     Route: 048
     Dates: end: 20061215
  2. LITHIONIT PROLONGED RELEASE [Suspect]
     Route: 048
     Dates: start: 20061201, end: 20061215
  3. ZYBAN [Suspect]
     Route: 048
     Dates: end: 20061215
  4. INDERAL [Concomitant]

REACTIONS (3)
  - CARDIAC FAILURE [None]
  - CARDIOMYOPATHY [None]
  - RENAL FAILURE [None]
